FAERS Safety Report 20227294 (Version 2)
Quarter: 2022Q1

REPORT INFORMATION
  Report Type: Spontaneous
  Country: US (occurrence: US)
  Receive Date: 20211224
  Receipt Date: 20220107
  Transmission Date: 20220423
  Serious: No
  Sender: FDA-Public Use
  Company Number: US-LUPIN PHARMACEUTICALS INC.-2021-25046

PATIENT
  Sex: Male

DRUGS (2)
  1. ZOLPIDEM TARTRATE [Suspect]
     Active Substance: ZOLPIDEM TARTRATE
     Indication: Insomnia
     Dosage: UNK
     Route: 065
  2. HYDROCODONE [Concomitant]
     Active Substance: HYDROCODONE
     Indication: Pain
     Dosage: UNK
     Route: 065

REACTIONS (1)
  - Drug effective for unapproved indication [Unknown]
